FAERS Safety Report 6635888-7 (Version None)
Quarter: 2010Q1

REPORT INFORMATION
  Report Type: 
  Country: None (occurrence: None)
  Receive Date: 20100316
  Receipt Date: 20100305
  Transmission Date: 20100710
  Serious: Yes (Other)
  Sender: FDA-Public Use
  Company Number: JP-ALLERGAN-1003159US

PATIENT
  Age: 69 Year
  Sex: Male

DRUGS (6)
  1. ALESION TABLET [Suspect]
     Indication: DRUG HYPERSENSITIVITY
     Dosage: 20 MG, QD
     Dates: start: 20091228, end: 20100205
  2. GASMOTIN [Concomitant]
  3. NAUZELIN [Concomitant]
  4. WARFARIN SODIUM [Concomitant]
  5. LANSOPRAZOLE-OD [Concomitant]
  6. HALFDIGOXIN [Concomitant]

REACTIONS (1)
  - HEPATIC FUNCTION ABNORMAL [None]
